FAERS Safety Report 12880012 (Version 1)
Quarter: 2016Q4

REPORT INFORMATION
  Report Type: Report from Study
  Country: CA (occurrence: CA)
  Receive Date: 20161025
  Receipt Date: 20161025
  Transmission Date: 20170207
  Serious: Yes (Hospitalization, Other)
  Sender: FDA-Public Use
  Company Number: CA-BAYER-2014-037881

PATIENT
  Age: 48 Year
  Sex: Female

DRUGS (11)
  1. AMITRIPTYLINE [Concomitant]
     Active Substance: AMITRIPTYLINE
     Dosage: UNK
  2. EMTEC-30 [Concomitant]
     Dosage: UNK
  3. WARFARIN [Concomitant]
     Active Substance: WARFARIN
     Dosage: UNK
  4. RANITIDINE. [Concomitant]
     Active Substance: RANITIDINE
  5. ADEMPAS [Suspect]
     Active Substance: RIOCIGUAT
     Indication: PULMONARY HYPERTENSION
     Dosage: 1 MG, TID
     Route: 048
     Dates: start: 20140224
  6. LASIX [Concomitant]
     Active Substance: FUROSEMIDE
  7. TRACLEER [Concomitant]
     Active Substance: BOSENTAN
  8. SYNTHROID [Concomitant]
     Active Substance: LEVOTHYROXINE SODIUM
  9. ADEMPAS [Suspect]
     Active Substance: RIOCIGUAT
     Indication: PULMONARY HYPERTENSION
     Dosage: 2.5 MG, TID
     Route: 048
  10. RISPERIDONE. [Concomitant]
     Active Substance: RISPERIDONE
     Dosage: UNK
  11. SPIRONOLACTONE. [Concomitant]
     Active Substance: SPIRONOLACTONE

REACTIONS (23)
  - Tremor [Not Recovered/Not Resolved]
  - Motor dysfunction [Not Recovered/Not Resolved]
  - Fall [Not Recovered/Not Resolved]
  - Obsessive-compulsive disorder [None]
  - Swelling [Recovered/Resolved]
  - Renal impairment [None]
  - Feeling hot [Not Recovered/Not Resolved]
  - Pain [Not Recovered/Not Resolved]
  - Gait disturbance [None]
  - Fine motor skill dysfunction [Not Recovered/Not Resolved]
  - Dizziness [Not Recovered/Not Resolved]
  - Product use issue [None]
  - Erythema [Not Recovered/Not Resolved]
  - Nasal congestion [Not Recovered/Not Resolved]
  - Seizure like phenomena [Not Recovered/Not Resolved]
  - Epistaxis [None]
  - Epistaxis [Not Recovered/Not Resolved]
  - Balance disorder [Not Recovered/Not Resolved]
  - Headache [Not Recovered/Not Resolved]
  - International normalised ratio increased [None]
  - Mood altered [Not Recovered/Not Resolved]
  - Time perception altered [Not Recovered/Not Resolved]
  - Complex regional pain syndrome [None]

NARRATIVE: CASE EVENT DATE: 20140303
